FAERS Safety Report 6394863-0 (Version None)
Quarter: 2009Q4

REPORT INFORMATION
  Report Type: 
  Country: None (occurrence: None)
  Receive Date: 20091009
  Receipt Date: 20091001
  Transmission Date: 20100525
  Serious: Yes (Hospitalization, Other)
  Sender: FDA-Public Use
  Company Number: US-BAYER-200918797NA

PATIENT
  Age: 66 Year
  Sex: Male

DRUGS (3)
  1. NEXAVAR [Suspect]
     Indication: HEPATIC NEOPLASM MALIGNANT
     Dosage: TOTAL DAILY DOSE: 800 MG  UNIT DOSE: 200 MG
     Route: 048
     Dates: start: 20090417, end: 20090417
  2. NEXAVAR [Suspect]
     Dosage: TOTAL DAILY DOSE: 800 MG  UNIT DOSE: 200 MG
     Route: 048
     Dates: start: 20090401, end: 20090901
  3. NEXAVAR [Suspect]
     Dosage: DECREASED THE DOSE (NOS)
     Route: 048
     Dates: start: 20090418, end: 20090401

REACTIONS (10)
  - CHEST PAIN [None]
  - CORONARY ARTERY OCCLUSION [None]
  - DEHYDRATION [None]
  - DIARRHOEA [None]
  - DYSPHONIA [None]
  - EUPHORIC MOOD [None]
  - FATIGUE [None]
  - FLUSHING [None]
  - HEPATIC PAIN [None]
  - SOMNOLENCE [None]
